FAERS Safety Report 5523070-6 (Version None)
Quarter: 2007Q4

REPORT INFORMATION
  Report Type: 
  Country: None (occurrence: None)
  Receive Date: 20071121
  Receipt Date: 20071113
  Transmission Date: 20080405
  Serious: Yes (Death, Other)
  Sender: FDA-Public Use
  Company Number: PHFR2007GB02959

PATIENT
  Sex: Male

DRUGS (4)
  1. GLEEVEC [Suspect]
     Indication: CHRONIC MYELOID LEUKAEMIA
     Route: 065
  2. DASATINIB [Concomitant]
     Route: 065
  3. NILOTINIB [Concomitant]
     Route: 065
  4. HYDROXYUREA [Concomitant]
     Route: 065

REACTIONS (4)
  - DYSPNOEA [None]
  - LUNG NEOPLASM MALIGNANT [None]
  - PERICARDIAL EFFUSION [None]
  - TACHYCARDIA [None]
